FAERS Safety Report 18891985 (Version 1)
Quarter: 2021Q1

REPORT INFORMATION
  Report Type: Spontaneous
  Country: US (occurrence: US)
  Receive Date: 20210215
  Receipt Date: 20210215
  Transmission Date: 20210420
  Serious: No
  Sender: FDA-Public Use
  Company Number: US-SA-2021SA050655

PATIENT
  Age: 75 Year
  Sex: Female

DRUGS (1)
  1. DUPIXENT [Suspect]
     Active Substance: DUPILUMAB
     Dosage: 300 MG
     Route: 058
     Dates: start: 202007

REACTIONS (4)
  - Condition aggravated [Unknown]
  - Skin exfoliation [Unknown]
  - Treatment noncompliance [Unknown]
  - Skin weeping [Unknown]

NARRATIVE: CASE EVENT DATE: 202009
